FAERS Safety Report 4553716-0 (Version None)
Quarter: 2004Q4

REPORT INFORMATION
  Report Type: 
  Country: None (occurrence: None)
  Receive Date: 20041230
  Receipt Date: 20040727
  Transmission Date: 20050328
  Serious: Yes (Hospitalization)
  Sender: FDA-Public Use
  Company Number: 04-07-1082

PATIENT
  Age: 47 Year
  Sex: Female
  Weight: 89.8122 kg

DRUGS (16)
  1. CLOZAPINE [Suspect]
     Indication: SCHIZOPHRENIA
     Dosage: 600MG QD ORAL
     Route: 048
     Dates: start: 20030305
  2. ALBUTEROL SULFATE [Concomitant]
  3. AVANDIA [Concomitant]
  4. CARDIZEM [Concomitant]
  5. DIOVAN [Concomitant]
  6. FLOVENT [Concomitant]
  7. GLUCOPHAGE [Concomitant]
  8. LASIX [Concomitant]
  9. PROLIXIN DECANOATE [Concomitant]
  10. SENOKOT [Concomitant]
  11. SEROQUEL [Concomitant]
  12. TRILEPTAL [Concomitant]
  13. TYLENOL [Concomitant]
  14. SINGULAIR [Concomitant]
  15. ... [Concomitant]
  16. ... [Concomitant]

REACTIONS (1)
  - DRUG INEFFECTIVE [None]
